FAERS Safety Report 20776751 (Version 3)
Quarter: 2022Q3

REPORT INFORMATION
  Report Type: Report from Study
  Country: US (occurrence: US)
  Receive Date: 20220502
  Receipt Date: 20220715
  Transmission Date: 20221026
  Serious: No
  Sender: FDA-Public Use
  Company Number: US-AGIOS-2204US03048

PATIENT
  Sex: Female

DRUGS (1)
  1. MITAPIVAT [Suspect]
     Active Substance: MITAPIVAT
     Indication: Pyruvate kinase deficiency anaemia
     Dosage: 5 MILLIGRAM, BID
     Route: 048
     Dates: start: 20220323

REACTIONS (2)
  - Rash pruritic [Recovered/Resolved]
  - Constipation [Recovered/Resolved]
